FAERS Safety Report 4964250-8 (Version None)
Quarter: 2006Q1

REPORT INFORMATION
  Report Type: 
  Country: None (occurrence: None)
  Receive Date: 20060331
  Receipt Date: 20060321
  Transmission Date: 20060701
  Serious: Yes (Hospitalization)
  Sender: FDA-Public Use
  Company Number: 13766

PATIENT
  Age: 62 Year
  Sex: Male

DRUGS (4)
  1. FLUOROURACIL [Suspect]
     Indication: COLON CANCER METASTATIC
     Dosage: 95312 MG PER_CYCLY; IV
     Route: 042
     Dates: start: 20050628, end: 20050628
  2. LEUCOVORIN [Suspect]
     Dosage: 13616 MG PER_CYCLE; IV
     Route: 042
     Dates: start: 20050628, end: 20050628
  3. OXALIPLATIN [Suspect]
     Indication: COLON CANCER METASTATIC
     Dosage: 2179 MG PER_CYCLE; IV
     Route: 042
     Dates: start: 20050503, end: 20050503
  4. OXYCONTIN [Suspect]

REACTIONS (2)
  - PNEUMONIA [None]
  - SYNCOPE [None]
